FAERS Safety Report 5244698-7 (Version None)
Quarter: 2007Q1

REPORT INFORMATION
  Report Type: 
  Country: None (occurrence: None)
  Receive Date: 20070222
  Receipt Date: 20070209
  Transmission Date: 20070707
  Serious: Yes (Disabling)
  Sender: FDA-Public Use
  Company Number: GB-MERCK-0702GBR00056

PATIENT
  Age: 80 Year

DRUGS (7)
  1. ZOCOR [Suspect]
     Indication: BLOOD CHOLESTEROL INCREASED
     Route: 048
     Dates: start: 20060201, end: 20070119
  2. CLARITHROMYCIN [Suspect]
     Indication: LOWER RESPIRATORY TRACT INFECTION
     Route: 048
     Dates: start: 20070117, end: 20070122
  3. CYCLOSPORINE [Suspect]
     Indication: ECZEMA
     Route: 048
     Dates: start: 20060201
  4. ASPIRIN [Concomitant]
     Indication: PROPHYLAXIS
     Route: 048
     Dates: start: 20060201
  5. BISOPROLOL [Concomitant]
     Route: 048
     Dates: start: 20060201
  6. LANSOPRAZOLE [Concomitant]
     Indication: PEPTIC ULCER
     Route: 048
     Dates: start: 20051101
  7. LEVOTHYROXINE SODIUM [Concomitant]
     Indication: HYPOTHYROIDISM
     Route: 048
     Dates: start: 20060201

REACTIONS (3)
  - BLOOD CREATININE INCREASED [None]
  - DRUG INTERACTION [None]
  - MUSCULAR WEAKNESS [None]
